FAERS Safety Report 8795135 (Version 2)
Quarter: 2015Q1

REPORT INFORMATION
  Report Type: Report from Study
  Country: US (occurrence: US)
  Receive Date: 20120917
  Receipt Date: 20150203
  Transmission Date: 20150721
  Serious: Yes (Death)
  Sender: FDA-Public Use
  Company Number: US-ROCHE-1129307

PATIENT
  Age: 50 Year
  Sex: Male

DRUGS (18)
  1. AVASTIN [Suspect]
     Active Substance: BEVACIZUMAB
     Indication: GASTRIC CANCER
  2. TYLENOL [Concomitant]
     Active Substance: ACETAMINOPHEN
     Dosage: ON DAY 1 AND DAY 15
     Route: 048
  3. OXALIPLATIN. [Concomitant]
     Active Substance: OXALIPLATIN
     Dosage: ON DAY 1
     Route: 042
  4. PROMETHAZINE [Concomitant]
     Active Substance: PROMETHAZINE\PROMETHAZINE HYDROCHLORIDE
  5. ALOXI [Concomitant]
     Active Substance: PALONOSETRON HYDROCHLORIDE
     Dosage: ON DAY 1 + DAY 15
     Route: 042
  6. 5-FLUOROURACIL [Concomitant]
     Active Substance: FLUOROURACIL
  7. AVASTIN [Suspect]
     Active Substance: BEVACIZUMAB
     Indication: GASTRIC CANCER
     Dosage: ON DAY 1 AND DAY 15
     Route: 042
     Dates: start: 20090707
  8. DECADRON [Concomitant]
     Active Substance: DEXAMETHASONE
     Dosage: ON DAY 1 AND DAY 15
     Route: 042
  9. IRINOTECAN [Concomitant]
     Active Substance: IRINOTECAN
  10. BENADRYL [Concomitant]
     Active Substance: DIPHENHYDRAMINE HYDROCHLORIDE
     Dosage: ON DAY 1 AND DAY 15
     Route: 042
  11. ZOMETA [Concomitant]
     Active Substance: ZOLEDRONIC ACID
     Route: 042
  12. LORTAB [Concomitant]
     Active Substance: ACETAMINOPHEN\HYDROCODONE BITARTRATE
  13. ONDANSETRON [Concomitant]
     Active Substance: ONDANSETRON
  14. CAMPTOSAR [Concomitant]
     Active Substance: IRINOTECAN HYDROCHLORIDE
     Dosage: ON DAY 1 AND DAY 15
     Route: 042
  15. SUCRALFATE. [Concomitant]
     Active Substance: SUCRALFATE
  16. IBUPROFEN. [Concomitant]
     Active Substance: IBUPROFEN
  17. EMEND [Concomitant]
     Active Substance: APREPITANT
  18. CISPLATIN. [Concomitant]
     Active Substance: CISPLATIN

REACTIONS (2)
  - Death [Fatal]
  - Bone pain [Unknown]

NARRATIVE: CASE EVENT DATE: 201002
